FAERS Safety Report 10719719 (Version 2)
Quarter: 2015Q1

REPORT INFORMATION
  Report Type: Spontaneous
  Country: US (occurrence: US)
  Receive Date: 20150119
  Receipt Date: 20150211
  Transmission Date: 20150721
  Serious: Yes (Hospitalization)
  Sender: FDA-Public Use
  Company Number: US-BIOGENIDEC-2015BI004285

PATIENT
  Age: 51 Year
  Sex: Female

DRUGS (1)
  1. AVONEX [Suspect]
     Active Substance: INTERFERON BETA-1A
     Indication: MULTIPLE SCLEROSIS
     Route: 030
     Dates: start: 20090819

REACTIONS (3)
  - Haemorrhagic stroke [Not Recovered/Not Resolved]
  - Intracranial pressure increased [Not Recovered/Not Resolved]
  - Unresponsive to stimuli [Unknown]

NARRATIVE: CASE EVENT DATE: 20140927
